FAERS Safety Report 14335281 (Version 1)
Quarter: 2017Q4

REPORT INFORMATION
  Report Type: Spontaneous
  Country: US (occurrence: US)
  Receive Date: 20171229
  Receipt Date: 20171229
  Transmission Date: 20180321
  Serious: Yes (Other)
  Sender: FDA-Public Use
  Company Number: US-ROCHE-2046412

PATIENT
  Sex: Female

DRUGS (1)
  1. OCREVUS [Suspect]
     Active Substance: OCRELIZUMAB
     Indication: MULTIPLE SCLEROSIS
     Dosage: DAY 1, DAY 15 THEN EVERY 6 MONTHS ;ONGOING: NO
     Route: 042
     Dates: start: 201706

REACTIONS (3)
  - Cough [Not Recovered/Not Resolved]
  - Meningitis [Unknown]
  - Chest discomfort [Recovered/Resolved]
